FAERS Safety Report 8720636 (Version 2)
Quarter: 2013Q1

REPORT INFORMATION
  Report Type: Spontaneous
  Country: BR (occurrence: BR)
  Receive Date: 20120813
  Receipt Date: 20130328
  Transmission Date: 20140127
  Serious: Yes (Hospitalization, Other)
  Sender: FDA-Public Use
  Company Number: BR-ROCHE-1099317

PATIENT
  Sex: Female

DRUGS (4)
  1. XOLAIR [Suspect]
     Indication: ASTHMA
     Dosage: TWO AMPOLUES
     Route: 058
  2. FORASEQ (BRAZIL) [Concomitant]
     Dosage: 12/400 MICRO GRAMS
     Route: 065
  3. SERETIDE [Concomitant]
     Dosage: 50/500 MICRO GRAMS
     Route: 065
  4. BEROTEC [Concomitant]
     Route: 065

REACTIONS (5)
  - Blood potassium decreased [Recovering/Resolving]
  - Blood pressure increased [Recovering/Resolving]
  - Formication [Recovering/Resolving]
  - Fatigue [Recovering/Resolving]
  - Decreased immune responsiveness [Recovering/Resolving]
